FAERS Safety Report 6920609-0 (Version None)
Quarter: 2010Q3

REPORT INFORMATION
  Report Type: 
  Country: None (occurrence: None)
  Receive Date: 20100812
  Receipt Date: 20100728
  Transmission Date: 20110219
  Serious: Yes (Other)
  Sender: FDA-Public Use
  Company Number: GB-RANBAXY-2010RR-36967

PATIENT
  Age: 59 Year
  Sex: Female
  Weight: 72 kg

DRUGS (2)
  1. PRAVASTATIN [Suspect]
     Indication: HYPERCHOLESTEROLAEMIA
     Dosage: 20 MG, UNK
     Route: 048
     Dates: start: 20100101, end: 20100101
  2. SIMVASTATIN [Suspect]
     Dosage: 40 MG, UNK
     Dates: start: 20060101, end: 20100101

REACTIONS (5)
  - ASTHMA [None]
  - PEAK EXPIRATORY FLOW RATE ABNORMAL [None]
  - PRODUCTIVE COUGH [None]
  - RESPIRATORY RATE INCREASED [None]
  - WHEEZING [None]
